FAERS Safety Report 17544032 (Version 3)
Quarter: 2020Q2

REPORT INFORMATION
  Report Type: Spontaneous
  Country: AT (occurrence: AT)
  Receive Date: 20200316
  Receipt Date: 20200421
  Transmission Date: 20200713
  Serious: Yes (Hospitalization)
  Sender: FDA-Public Use
  Company Number: NVSC2020AT072059

PATIENT
  Age: 4 Year
  Sex: Male

DRUGS (1)
  1. CLARITHROMYCIN. [Suspect]
     Active Substance: CLARITHROMYCIN
     Indication: PRODUCT USED FOR UNKNOWN INDICATION
     Dosage: 3 ML, BID (47.8 G GRANULES FOR 70 ML SUSPENSION)
     Route: 048

REACTIONS (6)
  - Infection [Unknown]
  - Abdominal pain upper [Unknown]
  - Lymphadenopathy [Unknown]
  - Dysgeusia [Unknown]
  - Dyspnoea [Unknown]
  - Throat tightness [Unknown]
